FAERS Safety Report 25247239 (Version 2)
Quarter: 2025Q2

REPORT INFORMATION
  Report Type: Spontaneous
  Country: JP (occurrence: JP)
  Receive Date: 20250428
  Receipt Date: 20250502
  Transmission Date: 20250716
  Serious: Yes (Hospitalization, Other)
  Sender: BRISTOL MYERS SQUIBB
  Company Number: JP-BRISTOL-MYERS SQUIBB COMPANY-2025-060771

PATIENT
  Age: 68 Year
  Sex: Male

DRUGS (2)
  1. YERVOY [Suspect]
     Active Substance: IPILIMUMAB
     Indication: Renal cell carcinoma
  2. OPDIVO [Suspect]
     Active Substance: NIVOLUMAB
     Indication: Renal cell carcinoma

REACTIONS (3)
  - Immune-mediated hepatic disorder [Recovered/Resolved]
  - Immune-mediated dermatitis [Recovered/Resolved]
  - Immune-mediated renal disorder [Recovered/Resolved]

NARRATIVE: CASE EVENT DATE: 20250401
